FAERS Safety Report 9771240 (Version 1)
Quarter: 2013Q4

REPORT INFORMATION
  Report Type: Report from Study
  Country: FR (occurrence: FR)
  Receive Date: 20131218
  Receipt Date: 20131218
  Transmission Date: 20140711
  Serious: Yes (Hospitalization, Other)
  Sender: FDA-Public Use
  Company Number: FR-GILEAD-2013-0089554

PATIENT
  Age: 62 Year
  Sex: Female

DRUGS (9)
  1. TRUVADA [Suspect]
     Indication: HIV INFECTION
     Dosage: UNK
     Route: 065
     Dates: start: 20121002, end: 20130830
  2. ASUNAPREVIR [Suspect]
     Indication: HEPATITIS C
     Dosage: 200 MG, QD
     Route: 048
     Dates: start: 20130523, end: 20131018
  3. ASUNAPREVIR [Suspect]
     Dosage: UNK
  4. DACLATASVIR [Suspect]
     Indication: HEPATITIS C
     Dosage: 60 MG, QD
     Route: 048
     Dates: start: 20130523, end: 20130830
  5. DACLATASVIR [Suspect]
     Dosage: 60 MG, QD
     Route: 048
     Dates: start: 20130523, end: 20131018
  6. PEGINTERFERON ALFA-2A [Suspect]
     Indication: PRODUCT USED FOR UNKNOWN INDICATION
     Dosage: .18 MG, Q1WK
     Route: 058
     Dates: start: 20130424
  7. RIBAVIRIN [Suspect]
     Indication: PRODUCT USED FOR UNKNOWN INDICATION
     Dosage: UNK
     Dates: start: 20130731, end: 20130830
  8. ISENTRESS [Concomitant]
     Dosage: UNK
     Dates: start: 20100915, end: 20130830
  9. RALTEGRAVIR [Concomitant]
     Indication: HIV INFECTION
     Dosage: UNK
     Dates: start: 20100915, end: 20130830

REACTIONS (4)
  - Staphylococcal bacteraemia [Unknown]
  - Intervertebral discitis [Unknown]
  - Interstitial lung disease [Unknown]
  - Renal failure [Unknown]
